FAERS Safety Report 4687686-1 (Version None)
Quarter: 2005Q2

REPORT INFORMATION
  Report Type: 
  Country: None (occurrence: None)
  Receive Date: 20050608
  Receipt Date: 20050608
  Transmission Date: 20051028
  Serious: No
  Sender: FDA-Public Use
  Company Number: None

PATIENT
  Age: 17 Year
  Sex: Female
  Weight: 67.586 kg

DRUGS (3)
  1. PROZAC [Suspect]
     Indication: DEPRESSION
     Dosage: QD   FOR 6-7 MONTHS
     Dates: start: 20010101
  2. PROZAC [Suspect]
     Indication: PANIC DISORDER
     Dosage: QD   FOR 6-7 MONTHS
     Dates: start: 20010101
  3. PAXIL [Suspect]

REACTIONS (1)
  - NAUSEA [None]
